FAERS Safety Report 5293539-0 (Version None)
Quarter: 2007Q2

REPORT INFORMATION
  Report Type: 
  Country: None (occurrence: None)
  Receive Date: 20070411
  Receipt Date: 20070405
  Transmission Date: 20071010
  Serious: Yes (Other)
  Sender: FDA-Public Use
  Company Number: SE-GLAXOSMITHKLINE-B0465649A

PATIENT
  Age: 75 Year
  Sex: Female

DRUGS (2)
  1. SEROXAT [Suspect]
     Indication: DRUG USE FOR UNKNOWN INDICATION
     Route: 065
  2. NO CONCURRENT MEDICATION [Concomitant]

REACTIONS (5)
  - AGGRESSION [None]
  - DRUG WITHDRAWAL SYNDROME [None]
  - GENITAL HAEMORRHAGE [None]
  - HYPERHIDROSIS [None]
  - PALPITATIONS [None]
